FAERS Safety Report 25044289 (Version 5)
Quarter: 2025Q3

REPORT INFORMATION
  Report Type: Spontaneous
  Country: JP (occurrence: JP)
  Receive Date: 20250306
  Receipt Date: 20250924
  Transmission Date: 20251020
  Serious: Yes (Other)
  Sender: ASTELLAS
  Company Number: JP-ASTELLAS-2024-AER-022977

PATIENT
  Age: 81 Year
  Sex: Female

DRUGS (8)
  1. PADCEV [Suspect]
     Active Substance: ENFORTUMAB VEDOTIN-EJFV
     Indication: Bladder cancer
     Route: 042
     Dates: start: 20241029, end: 20241112
  2. PADCEV [Suspect]
     Active Substance: ENFORTUMAB VEDOTIN-EJFV
     Indication: Ureteric cancer metastatic
     Route: 042
     Dates: start: 20241203, end: 20250114
  3. PADCEV [Suspect]
     Active Substance: ENFORTUMAB VEDOTIN-EJFV
     Route: 042
     Dates: start: 20250218
  4. KEYTRUDA [Concomitant]
     Active Substance: PEMBROLIZUMAB
     Indication: Ureteric cancer metastatic
     Route: 042
     Dates: start: 20231225, end: 20240402
  5. KEYTRUDA [Concomitant]
     Active Substance: PEMBROLIZUMAB
     Route: 042
     Dates: start: 20240423, end: 20241008
  6. 1.5% Levofloxacin ophthalmic [Concomitant]
     Indication: Ulcerative keratitis
     Route: 047
     Dates: start: 20250106, end: 20250121
  7. 0.1 % Flumetholon ophthalmic [Concomitant]
     Indication: Ulcerative keratitis
     Route: 047
     Dates: start: 20250106, end: 20250121
  8. DIBEKACIN SULFATE [Concomitant]
     Active Substance: DIBEKACIN SULFATE
     Indication: Ulcerative keratitis
     Route: 047
     Dates: start: 20250121, end: 20250124

REACTIONS (6)
  - Ulcerative keratitis [Recovered/Resolved]
  - Skin disorder [Recovered/Resolved]
  - Hepatic function abnormal [Recovered/Resolved]
  - Decreased appetite [Recovering/Resolving]
  - Alopecia [Recovering/Resolving]
  - Ageusia [Not Recovered/Not Resolved]

NARRATIVE: CASE EVENT DATE: 20241112
